FAERS Safety Report 8111914 (Version 3)
Quarter: 2012Q4

REPORT INFORMATION
  Report Type: 
  Country: US (occurrence: US)
  Receive Date: 20110829
  Receipt Date: 20121115
  Transmission Date: 20130627
  Serious: Yes (Other)
  Sender: FDA-Public Use
  Company Number: US-ASTRAZENECA-2010SE24235

PATIENT
  Age: 65 Year
  Sex: Female
  Weight: 99.8 kg

DRUGS (10)
  1. SEROQUEL [Suspect]
     Indication: SLEEP DISORDER
     Route: 048
     Dates: start: 2005
  2. SEROQUEL [Suspect]
     Indication: DEPRESSION
     Route: 048
     Dates: start: 2005
  3. SEROQUEL [Suspect]
     Indication: SLEEP DISORDER
     Dosage: AT NIGHT
     Route: 048
     Dates: start: 2006
  4. SEROQUEL [Suspect]
     Indication: DEPRESSION
     Dosage: AT NIGHT
     Route: 048
     Dates: start: 2006
  5. SEROQUEL [Suspect]
     Indication: SLEEP DISORDER
     Route: 048
  6. SEROQUEL [Suspect]
     Indication: DEPRESSION
     Route: 048
  7. SEROQUEL [Suspect]
     Indication: SLEEP DISORDER
     Dosage: 200 MG 2 TABLETS AT NIGHT
     Route: 048
  8. SEROQUEL [Suspect]
     Indication: DEPRESSION
     Dosage: 200 MG 2 TABLETS AT NIGHT
     Route: 048
  9. METFORMIN [Concomitant]
     Indication: DIABETES MELLITUS
     Dates: start: 201210
  10. BUSPIRONE [Concomitant]
     Indication: DEPRESSION
     Dates: start: 1997

REACTIONS (7)
  - Cerebrovascular accident [Unknown]
  - Eye prosthesis user [Unknown]
  - Back pain [Recovering/Resolving]
  - Neck pain [Recovering/Resolving]
  - Musculoskeletal pain [Recovering/Resolving]
  - Anogenital warts [Unknown]
  - Mental impairment [Unknown]
